FAERS Safety Report 17941955 (Version 1)
Quarter: 2020Q2

REPORT INFORMATION
  Report Type: Spontaneous
  Country: US (occurrence: US)
  Receive Date: 20200624
  Receipt Date: 20200624
  Transmission Date: 20200714
  Serious: Yes (Death)
  Sender: FDA-Public Use
  Company Number: US-VIFOR (INTERNATIONAL) INC.-VIT-2020-06715

PATIENT
  Age: 93 Year
  Sex: Male

DRUGS (12)
  1. AMLODIPINE [Concomitant]
     Active Substance: AMLODIPINE BESYLATE
  2. VELTASSA [Suspect]
     Active Substance: PATIROMER
     Indication: HYPERKALAEMIA
     Route: 048
     Dates: start: 20170512, end: 202006
  3. VITAMIN B12 [Concomitant]
     Active Substance: CYANOCOBALAMIN
  4. FEBUXOSTAT. [Concomitant]
     Active Substance: FEBUXOSTAT
  5. TRAMADOL. [Concomitant]
     Active Substance: TRAMADOL
  6. FUROSEMIDE. [Concomitant]
     Active Substance: FUROSEMIDE
  7. TEMAZEPAM. [Concomitant]
     Active Substance: TEMAZEPAM
  8. QUETIAPINE. [Concomitant]
     Active Substance: QUETIAPINE
  9. PREGABALIN. [Concomitant]
     Active Substance: PREGABALIN
  10. BENICAR [Concomitant]
     Active Substance: OLMESARTAN MEDOXOMIL
  11. PREDNISONE. [Concomitant]
     Active Substance: PREDNISONE
  12. BUMETANIDE. [Concomitant]
     Active Substance: BUMETANIDE

REACTIONS (1)
  - Death [Fatal]

NARRATIVE: CASE EVENT DATE: 20200614
